FAERS Safety Report 8513599-0 (Version None)
Quarter: 2012Q3

REPORT INFORMATION
  Report Type: 
  Country: None (occurrence: None)
  Receive Date: 20120717
  Receipt Date: 20120715
  Transmission Date: 20120928
  Serious: Yes (Other)
  Sender: FDA-Public Use
  Company Number: US-PFIZER INC-2012170054

PATIENT
  Age: 62 Year
  Sex: Female
  Weight: 57.143 kg

DRUGS (3)
  1. NEFAZODONE [Concomitant]
     Dosage: 300 MG, DAILY
  2. CELEBREX [Suspect]
     Indication: INFLAMMATION
     Dosage: 100 MG, 2X/DAY
     Route: 048
     Dates: start: 20120101, end: 20120601
  3. TIAZAC [Concomitant]
     Indication: HEART RATE ABNORMAL
     Dosage: 120 MG, DAILY

REACTIONS (14)
  - CHEST PAIN [None]
  - HYPERTENSION [None]
  - MYOCARDIAL INFARCTION [None]
  - FEELING ABNORMAL [None]
  - CEREBROVASCULAR ACCIDENT [None]
  - BLOOD CREATINE ABNORMAL [None]
  - NAUSEA [None]
  - HOT FLUSH [None]
  - ANXIETY [None]
  - MUSCLE SPASMS [None]
  - HEART RATE INCREASED [None]
  - VISION BLURRED [None]
  - DEPRESSION [None]
  - SLEEP DISORDER [None]
